FAERS Safety Report 12990816 (Version 3)
Quarter: 2017Q1

REPORT INFORMATION
  Report Type: Spontaneous
  Country: US (occurrence: US)
  Receive Date: 20161201
  Receipt Date: 20170209
  Transmission Date: 20170428
  Serious: Yes (Hospitalization, Other)
  Sender: FDA-Public Use
  Company Number: US-JNJFOC-20161121957

PATIENT
  Age: 65 Year
  Sex: Female
  Weight: 73.03 kg

DRUGS (4)
  1. XARELTO [Suspect]
     Active Substance: RIVAROXABAN
     Indication: PRODUCT USED FOR UNKNOWN INDICATION
     Route: 048
     Dates: end: 2016
  2. XARELTO [Suspect]
     Active Substance: RIVAROXABAN
     Indication: PRODUCT USED FOR UNKNOWN INDICATION
     Route: 048
     Dates: start: 2016
  3. SUTENT [Suspect]
     Active Substance: SUNITINIB MALATE
     Indication: RENAL CELL CARCINOMA
     Dosage: FOR 2 WEEKS
     Route: 048
     Dates: start: 20160630, end: 2016
  4. SUTENT [Suspect]
     Active Substance: SUNITINIB MALATE
     Indication: RENAL CELL CARCINOMA
     Route: 048
     Dates: start: 2016

REACTIONS (15)
  - Haemorrhage [Unknown]
  - Ischaemic hepatitis [Unknown]
  - Haemorrhoidal haemorrhage [Recovered/Resolved]
  - Back pain [Unknown]
  - Thyroid disorder [Unknown]
  - Generalised oedema [Unknown]
  - Blood urine present [Recovered/Resolved]
  - Atrial fibrillation [Not Recovered/Not Resolved]
  - Clostridium difficile colitis [Unknown]
  - Skin exfoliation [Not Recovered/Not Resolved]
  - Alopecia [Unknown]
  - Gingival bleeding [Unknown]
  - Arthralgia [Unknown]
  - Gastrointestinal haemorrhage [Recovered/Resolved]
  - Hypertension [Unknown]

NARRATIVE: CASE EVENT DATE: 201508
